FAERS Safety Report 5822121-9 (Version None)
Quarter: 2008Q3

REPORT INFORMATION
  Report Type: 
  Country: None (occurrence: None)
  Receive Date: 20080725
  Receipt Date: 20080716
  Transmission Date: 20090109
  Serious: Yes (Other)
  Sender: FDA-Public Use
  Company Number: ES-JNJFOC-20080704069

PATIENT
  Age: 8 Year
  Sex: Male

DRUGS (2)
  1. RISPERDAL [Suspect]
     Indication: PSYCHOMOTOR HYPERACTIVITY
     Route: 048
  2. RUBIFEN [Concomitant]
     Indication: PSYCHOMOTOR HYPERACTIVITY

REACTIONS (5)
  - EYE MOVEMENT DISORDER [None]
  - MUSCLE RIGIDITY [None]
  - NUCHAL RIGIDITY [None]
  - PAIN [None]
  - VISUAL IMPAIRMENT [None]
